FAERS Safety Report 8528208 (Version 2)
Quarter: 2013Q4

REPORT INFORMATION
  Report Type: Spontaneous
  Country: US (occurrence: US)
  Receive Date: 20120424
  Receipt Date: 20131025
  Transmission Date: 20140711
  Serious: Yes (Other)
  Sender: FDA-Public Use
  Company Number: US-ROCHE-1061233

PATIENT
  Sex: Female
  Weight: 64.47 kg

DRUGS (3)
  1. ACCUTANE [Suspect]
     Indication: ACNE
     Route: 065
     Dates: start: 1980
  2. ACCUTANE [Suspect]
     Route: 065
     Dates: start: 1983, end: 1984
  3. NITROUS OXIDE [Concomitant]

REACTIONS (6)
  - Colitis ulcerative [Unknown]
  - Inflammatory bowel disease [Unknown]
  - Depression [Not Recovered/Not Resolved]
  - Injury [Unknown]
  - Suicidal ideation [Unknown]
  - Irritable bowel syndrome [Unknown]
